FAERS Safety Report 16617351 (Version 1)
Quarter: 2019Q3

REPORT INFORMATION
  Report Type: Spontaneous
  Country: US (occurrence: US)
  Receive Date: 20190723
  Receipt Date: 20190723
  Transmission Date: 20191004
  Serious: No
  Sender: FDA-Public Use
  Company Number: US-GILEAD-2019-0419459

PATIENT
  Age: 72 Year
  Sex: Female

DRUGS (1)
  1. RANEXA [Suspect]
     Active Substance: RANOLAZINE
     Indication: ANGINA UNSTABLE
     Dosage: 500 MG, BID
     Route: 065
     Dates: start: 20190714

REACTIONS (2)
  - Chest pain [Not Recovered/Not Resolved]
  - Weight decreased [Not Recovered/Not Resolved]

NARRATIVE: CASE EVENT DATE: 201907
